FAERS Safety Report 8606560-9 (Version None)
Quarter: 2012Q3

REPORT INFORMATION
  Report Type: 
  Country: None (occurrence: None)
  Receive Date: 20120808
  Receipt Date: 20120808
  Transmission Date: 20120928
  Serious: Yes (Other)
  Sender: FDA-Public Use
  Company Number: None

PATIENT

DRUGS (1)
  1. VENLAFAXINE [Suspect]
     Indication: DEPRESSION
     Dosage: 3 DAILY BY MOUTH

REACTIONS (3)
  - PRODUCT SUBSTITUTION ISSUE [None]
  - HOT FLUSH [None]
  - CRYING [None]
